FAERS Safety Report 18282365 (Version 1)
Quarter: 2020Q3

REPORT INFORMATION
  Report Type: Spontaneous
  Country: FR (occurrence: FR)
  Receive Date: 20200918
  Receipt Date: 20200918
  Transmission Date: 20201103
  Serious: Yes (Hospitalization)
  Sender: FDA-Public Use
  Company Number: FR-ACCORD-201313

PATIENT
  Age: 86 Year
  Sex: Female
  Weight: 51.5 kg

DRUGS (15)
  1. PANTOPRAZOLE [Suspect]
     Active Substance: PANTOPRAZOLE
     Indication: GASTRITIS PROPHYLAXIS
     Route: 048
     Dates: end: 20200817
  2. SYMBICORT [Suspect]
     Active Substance: BUDESONIDE\FORMOTEROL FUMARATE DIHYDRATE
     Indication: CHRONIC OBSTRUCTIVE PULMONARY DISEASE
     Route: 055
  3. PANTOPRAZOLE SODIUM. [Suspect]
     Active Substance: PANTOPRAZOLE SODIUM
     Indication: GASTRITIS PROPHYLAXIS
     Route: 042
     Dates: start: 20200818, end: 20200825
  4. ATORVASTATIN [Concomitant]
     Active Substance: ATORVASTATIN
  5. ACTISKENAN [Concomitant]
     Active Substance: MORPHINE SULFATE
  6. METRONIDAZOLE. [Concomitant]
     Active Substance: METRONIDAZOLE
  7. LERCANIDIPINE [Concomitant]
     Active Substance: LERCANIDIPINE
  8. DIFFU K [Concomitant]
     Active Substance: POTASSIUM CHLORIDE
  9. PREGABALIN. [Concomitant]
     Active Substance: PREGABALIN
  10. KARDEGIC [Concomitant]
     Active Substance: ASPIRIN DL-LYSINE
  11. LOVENOX [Concomitant]
     Active Substance: ENOXAPARIN SODIUM
  12. DOLIPRANE [Concomitant]
     Active Substance: ACETAMINOPHEN
  13. FUROSEMIDE. [Suspect]
     Active Substance: FUROSEMIDE
     Indication: CARDIOVASCULAR DISORDER
     Route: 048
  14. BISOPROLOL [Concomitant]
     Active Substance: BISOPROLOL
  15. CEFTRIAXONE MYLAN [Concomitant]
     Active Substance: CEFTRIAXONE

REACTIONS (2)
  - Hypocalcaemia [Recovering/Resolving]
  - Electrocardiogram QT prolonged [Recovered/Resolved]

NARRATIVE: CASE EVENT DATE: 20200824
